FAERS Safety Report 7752327-3 (Version None)
Quarter: 2011Q3

REPORT INFORMATION
  Report Type: 
  Country: None (occurrence: None)
  Receive Date: 20110915
  Receipt Date: 20110902
  Transmission Date: 20111222
  Serious: Yes (Life-Threatening, Hospitalization)
  Sender: FDA-Public Use
  Company Number: UA-ELI_LILLY_AND_COMPANY-UA201108004051

PATIENT
  Age: 46 Year
  Sex: Female

DRUGS (4)
  1. AMINAZINUM [Concomitant]
     Dosage: UNK
     Dates: end: 20110803
  2. ZYPREXA [Suspect]
     Dosage: 7.5 MG, QD
     Route: 048
     Dates: start: 20110718, end: 20110803
  3. DEPAKENE [Concomitant]
     Dosage: UNK
     Dates: end: 20110803
  4. ZYPREXA [Suspect]
     Indication: SCHIZOTYPAL PERSONALITY DISORDER
     Dosage: 5 MG, QD
     Route: 048
     Dates: start: 20090101, end: 20110717

REACTIONS (1)
  - TOXIC EPIDERMAL NECROLYSIS [None]
